FAERS Safety Report 8567344-3 (Version None)
Quarter: 2012Q3

REPORT INFORMATION
  Report Type: 
  Country: None (occurrence: None)
  Receive Date: 20120803
  Receipt Date: 20111209
  Transmission Date: 20120928
  Serious: No
  Sender: FDA-Public Use
  Company Number: US-ABBOTT-11P-163-0882290-00

PATIENT
  Sex: Male
  Weight: 104.42 kg

DRUGS (3)
  1. CRESTOR [Concomitant]
     Indication: PRODUCT USED FOR UNKNOWN INDICATION
     Route: 048
  2. NIASPAN [Suspect]
     Indication: BLOOD TRIGLYCERIDES INCREASED
     Dosage: AT BEDTIME
     Route: 048
     Dates: start: 20111205, end: 20111206
  3. NEXIUM [Concomitant]
     Indication: BARRETT'S OESOPHAGUS
     Route: 048

REACTIONS (1)
  - FLUSHING [None]
